FAERS Safety Report 24377772 (Version 1)
Quarter: 2024Q3

REPORT INFORMATION
  Report Type: Spontaneous
  Country: JP (occurrence: JP)
  Receive Date: 20240930
  Receipt Date: 20240930
  Transmission Date: 20241016
  Serious: No
  Sender: BOEHRINGER INGELHEIM
  Company Number: JP-NBI-2024-BI-054029

PATIENT
  Age: 60 Year
  Sex: Female

DRUGS (2)
  1. SPEVIGO [Suspect]
     Active Substance: SPESOLIMAB-SBZO
     Indication: Pustular psoriasis
     Dosage: DAILY DOSE: 900 MILLIGRAM(S)
     Route: 041
     Dates: start: 20240802, end: 20240802
  2. SPEVIGO [Suspect]
     Active Substance: SPESOLIMAB-SBZO
     Dosage: DAILY DOSE: 900 MILLIGRAM(S)
     Route: 041
     Dates: start: 20240809, end: 20240809

REACTIONS (1)
  - Neuropathy peripheral [Unknown]

NARRATIVE: CASE EVENT DATE: 20240927
